FAERS Safety Report 5784587-2 (Version None)
Quarter: 2008Q2

REPORT INFORMATION
  Report Type: 
  Country: None (occurrence: None)
  Receive Date: 20080624
  Receipt Date: 20080619
  Transmission Date: 20081010
  Serious: Yes (Hospitalization)
  Sender: FDA-Public Use
  Company Number: DE-AVENTIS-200811640DE

PATIENT
  Age: 67 Year
  Sex: Female

DRUGS (8)
  1. TAXOTERE [Suspect]
     Indication: BREAST CANCER
     Route: 042
     Dates: start: 20080604, end: 20080604
  2. ADRIAMYCIN PFS [Suspect]
     Indication: BREAST CANCER
     Route: 042
     Dates: start: 20080604, end: 20080604
  3. CYCLOPHOSPHAMIDE [Suspect]
     Indication: BREAST CANCER
     Route: 042
     Dates: start: 20080604, end: 20080604
  4. BELOC                              /00376902/ [Concomitant]
     Dosage: DOSE: NOT REPORTED
  5. DOXAZOSIN MESYLATE [Concomitant]
     Dosage: DOSE: NOT REPORTED
  6. RAMIPRIL [Concomitant]
     Dosage: DOSE: NOT REPORTED
  7. LEVOTHYROXINE SODIUM [Concomitant]
     Dosage: DOSE: NOT REPORTED
  8. MIRTAZAPINE [Concomitant]
     Indication: DEPRESSION
     Dosage: DOSE: NOT REPORTED

REACTIONS (5)
  - CHEST PAIN [None]
  - DIZZINESS [None]
  - HEADACHE [None]
  - HYPOKALAEMIA [None]
  - NAUSEA [None]
